FAERS Safety Report 13835217 (Version 2)
Quarter: 2017Q3

REPORT INFORMATION
  Report Type: Report from Study
  Country: IT (occurrence: IT)
  Receive Date: 20170804
  Receipt Date: 20170901
  Transmission Date: 20171127
  Serious: Yes (Hospitalization, Congenital Anomaly)
  Sender: FDA-Public Use
  Company Number: IT-ACCORD-056675

PATIENT
  Sex: Female
  Weight: 3.85 kg

DRUGS (4)
  1. LEVETIRACETAM. [Suspect]
     Active Substance: LEVETIRACETAM
     Indication: EPILEPSY
     Dosage: WAS ON LEVETIRACETAM FOR ALL THE 3 TRIMESTERS?DAILY MAXIMAL SINGLE DOSE WAS 500 MG
     Route: 064
     Dates: start: 20150301
  2. ADEMETIONINE/ADEMETIONINE CHLORIDE/ADEMETIONINE DISULFATE DITOSYL/ADEMETIONINE TOSILATE SULFATE [Concomitant]
     Indication: DEPRESSION
     Route: 064
  3. MAALOX ANTACID [Concomitant]
     Active Substance: ALUMINUM HYDROXIDE\DIMETHICONE\MAGNESIUM HYDROXIDE
     Indication: GASTROOESOPHAGEAL REFLUX DISEASE
     Route: 064
  4. FOLIC ACID. [Concomitant]
     Active Substance: FOLIC ACID
     Indication: PRODUCT USED FOR UNKNOWN INDICATION
     Route: 064
     Dates: start: 20150301

REACTIONS (3)
  - Foetal exposure during pregnancy [Unknown]
  - Right aortic arch [Not Recovered/Not Resolved]
  - Congenital arterial malformation [Not Recovered/Not Resolved]
